FAERS Safety Report 14171351 (Version 1)
Quarter: 2017Q4

REPORT INFORMATION
  Report Type: Spontaneous
  Country: GB (occurrence: GB)
  Receive Date: 20171108
  Receipt Date: 20171108
  Transmission Date: 20180321
  Serious: Yes (Hospitalization)
  Sender: FDA-Public Use
  Company Number: GB-TEVA-822072ACC

PATIENT
  Age: 68 Year
  Sex: Female

DRUGS (4)
  1. ZOPICLONE [Concomitant]
     Active Substance: ZOPICLONE
  2. FLECAINIDE [Suspect]
     Active Substance: FLECAINIDE
     Indication: TACHYCARDIA
     Dosage: 100 MILLIGRAM DAILY;
     Route: 048
     Dates: end: 20171009
  3. BISOPROLOL [Suspect]
     Active Substance: BISOPROLOL
     Route: 065
  4. GABAPENTIN. [Concomitant]
     Active Substance: GABAPENTIN

REACTIONS (1)
  - Neuralgia [Recovering/Resolving]
